FAERS Safety Report 22384876 (Version 3)
Quarter: 2023Q2

REPORT INFORMATION
  Report Type: Spontaneous
  Country: FR (occurrence: FR)
  Receive Date: 20230530
  Receipt Date: 20230623
  Transmission Date: 20230722
  Serious: Yes (Hospitalization, Other)
  Sender: FDA-Public Use
  Company Number: None

PATIENT
  Age: 67 Year
  Sex: Male

DRUGS (20)
  1. RITUXIMAB [Suspect]
     Active Substance: RITUXIMAB
     Indication: Central nervous system lymphoma
     Dosage: 700 MG, SINGLE
     Route: 042
     Dates: start: 20230418, end: 20230418
  2. VINCRISTINE SULFATE [Suspect]
     Active Substance: VINCRISTINE SULFATE
     Indication: Central nervous system lymphoma
     Dosage: 2 MG, SINGLE
     Route: 042
     Dates: start: 20230418, end: 20230418
  3. LEUCOVORIN CALCIUM [Suspect]
     Active Substance: LEUCOVORIN CALCIUM
     Indication: Prophylaxis
     Dosage: 186 MG, SINGLE
     Route: 042
     Dates: start: 20230419, end: 20230421
  4. SOLU-MEDROL [Suspect]
     Active Substance: METHYLPREDNISOLONE SODIUM SUCCINATE
     Indication: Chemotherapy side effect prophylaxis
     Dosage: 340 MG, SINGLE
     Route: 042
     Dates: start: 20230418, end: 20230423
  5. POLARAMINE [Suspect]
     Active Substance: DEXCHLORPHENIRAMINE MALEATE
     Indication: Prophylaxis
     Dosage: 5 MG, SINGLE
     Route: 042
     Dates: start: 20230418, end: 20230418
  6. ACETAMINOPHEN [Suspect]
     Active Substance: ACETAMINOPHEN
     Indication: Pain prophylaxis
     Dosage: 1000 MG, SINGLE
     Route: 042
     Dates: start: 20230418, end: 20230418
  7. METHOTREXATE [Suspect]
     Active Substance: METHOTREXATE
     Indication: Central nervous system lymphoma
     Dosage: 6500 MG, SINGLE
     Route: 042
     Dates: start: 20230418, end: 20230418
  8. ONDANSETRON [Suspect]
     Active Substance: ONDANSETRON
     Indication: Prophylaxis of nausea and vomiting
     Dosage: 8 MG, SINGLE
     Route: 042
     Dates: start: 20230418, end: 20230418
  9. DILTIAZEM HYDROCHLORIDE [Concomitant]
     Active Substance: DILTIAZEM HYDROCHLORIDE
     Dosage: 240 MG, 1X/DAY
     Route: 048
  10. LEVOTHYROXINE [Concomitant]
     Active Substance: LEVOTHYROXINE
     Dosage: 87.5 UG, 1X/DAY
     Route: 048
  11. PROCARBAZINE HYDROCHLORIDE [Concomitant]
     Active Substance: PROCARBAZINE HYDROCHLORIDE
     Dosage: 200 MG, 1X/DAY
     Route: 048
     Dates: start: 20230418, end: 20230424
  12. ELIQUIS [Concomitant]
     Active Substance: APIXABAN
     Dosage: 10 MG, 1X/DAY
     Route: 048
  13. VALACYCLOVIR HYDROCHLORIDE [Concomitant]
     Active Substance: VALACYCLOVIR HYDROCHLORIDE
     Dosage: 1 G, 1X/DAY
     Route: 048
  14. POTASSIUM CHLORIDE [Concomitant]
     Active Substance: POTASSIUM CHLORIDE
     Dosage: 1.2 G, 1X/DAY
     Route: 048
  15. ATORVASTATIN [Concomitant]
     Active Substance: ATORVASTATIN
     Dosage: 40 MG, 1X/DAY
     Route: 048
  16. PENTACARINAT [Concomitant]
     Active Substance: PENTAMIDINE ISETHIONATE
     Dosage: 1 DF, MONTHLY
     Route: 055
  17. PHLOROGLUCINOL [Concomitant]
     Active Substance: PHLOROGLUCINOL
     Dosage: 1 DF, AS NEEDED
     Route: 048
  18. ACETAMINOPHEN [Concomitant]
     Active Substance: ACETAMINOPHEN
     Dosage: 1 DF, AS NEEDED
     Route: 048
  19. OXYCODONE [Concomitant]
     Active Substance: OXYCODONE
     Dosage: 5 MG, AS NEEDED
     Route: 048
  20. CALCIUM CARBONATE [Concomitant]
     Active Substance: CALCIUM CARBONATE
     Dosage: 1.5 G, 1X/DAY
     Route: 048

REACTIONS (2)
  - Prescribed overdose [Recovered/Resolved]
  - Acute kidney injury [Recovered/Resolved]

NARRATIVE: CASE EVENT DATE: 20230418
